FAERS Safety Report 7434687-6 (Version None)
Quarter: 2011Q2

REPORT INFORMATION
  Report Type: 
  Country: None (occurrence: None)
  Receive Date: 20110415
  Receipt Date: 20110406
  Transmission Date: 20111010
  Serious: Yes (Hospitalization)
  Sender: FDA-Public Use
  Company Number: CIP11000799

PATIENT
  Age: 67 Year
  Sex: Male

DRUGS (5)
  1. ALDACTONE [Concomitant]
  2. LEVOFLOXACIN [Concomitant]
  3. LASIX [Concomitant]
  4. ACTONEL [Suspect]
     Indication: OSTEITIS DEFORMANS
     Dosage: 17.5MG ONCE DAILY, ORAL
     Route: 048
     Dates: start: 20110225, end: 20110322
  5. LOXONIN (LOXOPROFEN) [Concomitant]

REACTIONS (3)
  - DRUG ADMINISTRATION ERROR [None]
  - BLOOD CREATININE INCREASED [None]
  - RENAL IMPAIRMENT [None]
